FAERS Safety Report 10166234 (Version 2)
Quarter: 2014Q2

REPORT INFORMATION
  Report Type: Spontaneous
  Country: JP (occurrence: JP)
  Receive Date: 20140512
  Receipt Date: 20140515
  Transmission Date: 20141212
  Serious: Yes (Other)
  Sender: FDA-Public Use
  Company Number: JP-009507513-1405JPN005327

PATIENT
  Age: 43 Year
  Sex: Male

DRUGS (7)
  1. REFLEX [Suspect]
     Route: 048
  2. FLUNITRAZEPAM [Concomitant]
     Route: 048
  3. TRIAZOLAM [Concomitant]
     Route: 048
  4. ZOPICLONE [Concomitant]
     Route: 048
  5. CHLORPROMAZINE HYDROCHLORIDE (+) PHENOBARBITAL (+) PROMETHAZINE HYDROC [Concomitant]
     Route: 048
  6. BROMAZEPAM [Concomitant]
     Route: 048
  7. LEVOMEPROMAZINE MALEATE [Concomitant]
     Route: 048

REACTIONS (1)
  - Toxicity to various agents [Unknown]
